FAERS Safety Report 4349258-8 (Version None)
Quarter: 2004Q2

REPORT INFORMATION
  Report Type: 
  Country: None (occurrence: None)
  Receive Date: 20040427
  Receipt Date: 20031113
  Transmission Date: 20050107
  Serious: Yes (Hospitalization)
  Sender: FDA-Public Use
  Company Number: 000699

PATIENT
  Age: 62 Year
  Sex: Female

DRUGS (5)
  1. ZEVALIN [Suspect]
     Indication: NON-HODGKIN'S LYMPHOMA
     Dosage: 250 MG/M2, RITUXAN DOSE 1, INTRAVENOUS
     Route: 042
     Dates: start: 20030108, end: 20030108
  2. ZEVALIN [Suspect]
     Dosage: 5 MCI, IN-[111] ZEVALIN DOSE 1, INTRAVENOUS
     Route: 042
     Dates: start: 20030108, end: 20030108
  3. ZEVALIN [Suspect]
     Dosage: 250 MG/M2, RITUXAN DOSE 2, INTRAVENOUS; 5 MCI, IN-[111] ZEVALIN DOSE 2, INTRAVENOUS
     Route: 042
     Dates: start: 20030115, end: 20030115
  4. ZEVALIN [Suspect]
     Dosage: 250 MG/M2, RITUXAN DOSE 2, INTRAVENOUS; 5 MCI, IN-[111] ZEVALIN DOSE 2, INTRAVENOUS
     Route: 042
     Dates: start: 20030115, end: 20030115
  5. ZEVALIN [Suspect]
     Dosage: 20.2 MCI, Y-[90] ZEVALIN, INTRAVENOUS
     Route: 042
     Dates: start: 20030115, end: 20030115

REACTIONS (3)
  - PANCYTOPENIA [None]
  - PNEUMONIA [None]
  - PYREXIA [None]
